FAERS Safety Report 25377225 (Version 1)
Quarter: 2025Q2

REPORT INFORMATION
  Report Type: Spontaneous
  Country: CZ (occurrence: CZ)
  Receive Date: 20250530
  Receipt Date: 20250530
  Transmission Date: 20250716
  Serious: Yes (Hospitalization, Other)
  Sender: TEVA
  Company Number: CZ-TEVA-VS-3334753

PATIENT
  Age: 59 Year
  Sex: Female

DRUGS (6)
  1. TRAMADOL [Suspect]
     Active Substance: TRAMADOL
     Indication: Product used for unknown indication
     Route: 065
  2. THEOPHYLLINE [Suspect]
     Active Substance: THEOPHYLLINE
     Indication: Dyspnoea
     Route: 065
  3. THEOPHYLLINE [Suspect]
     Active Substance: THEOPHYLLINE
     Indication: Dyspnoea
     Route: 065
  4. ACETAMINOPHEN\TRAMADOL [Suspect]
     Active Substance: ACETAMINOPHEN\TRAMADOL
     Indication: Dyspnoea
     Route: 065
  5. TIOTROPIUM BROMIDE [Concomitant]
     Active Substance: TIOTROPIUM BROMIDE
     Indication: Product used for unknown indication
     Dosage: RESPIRATORY (INHALATION)
     Route: 065
  6. CLONAZEPAM [Concomitant]
     Active Substance: CLONAZEPAM
     Indication: Product used for unknown indication
     Route: 065

REACTIONS (11)
  - Toxicity to various agents [Unknown]
  - Intentional product misuse [Unknown]
  - Palpitations [Unknown]
  - Haematemesis [Recovering/Resolving]
  - Hypokalaemia [Recovered/Resolved]
  - Drug abuse [Unknown]
  - Blood pressure decreased [Unknown]
  - Tremor [Unknown]
  - Agitation [Unknown]
  - Sinus tachycardia [Recovered/Resolved]
  - Hyponatraemia [Unknown]
